FAERS Safety Report 6124898-4 (Version None)
Quarter: 2009Q1

REPORT INFORMATION
  Report Type: 
  Country: None (occurrence: None)
  Receive Date: 20090319
  Receipt Date: 20090310
  Transmission Date: 20090719
  Serious: Yes (Death, Hospitalization, Other)
  Sender: FDA-Public Use
  Company Number: SE-B.I. PHARMACEUTICALS,INC./RIDGEFIELD-2009-DE-02207GD

PATIENT
  Age: 59 Year
  Sex: Female

DRUGS (1)
  1. RANITIDINE [Suspect]

REACTIONS (4)
  - ALCOHOLIC LIVER DISEASE [None]
  - AUTOIMMUNE HEPATITIS [None]
  - CIRRHOSIS ALCOHOLIC [None]
  - LIVER DISORDER [None]
